FAERS Safety Report 24321054 (Version 1)
Quarter: 2024Q3

REPORT INFORMATION
  Report Type: Report from Study
  Country: AR (occurrence: AR)
  Receive Date: 20240915
  Receipt Date: 20240915
  Transmission Date: 20241017
  Serious: Yes (Hospitalization)
  Sender: BIOGEN
  Company Number: AR-BIOGEN-2024BI01281931

PATIENT
  Age: 1 Year
  Sex: Female

DRUGS (1)
  1. SPINRAZA [Suspect]
     Active Substance: NUSINERSEN
     Indication: Spinal muscular atrophy
     Dosage: LAST APPLICATION ON 30MAY2024
     Route: 050
     Dates: start: 20231123

REACTIONS (7)
  - Respiratory symptom [Not Recovered/Not Resolved]
  - Oxygen saturation decreased [Unknown]
  - Secretion discharge [Unknown]
  - Abdominal pain upper [Unknown]
  - Diarrhoea [Unknown]
  - Adenovirus infection [Unknown]
  - Pyrexia [Unknown]

NARRATIVE: CASE EVENT DATE: 20240903
